FAERS Safety Report 17402477 (Version 2)
Quarter: 2020Q1

REPORT INFORMATION
  Report Type: Spontaneous
  Country: US (occurrence: US)
  Receive Date: 20200211
  Receipt Date: 20200218
  Transmission Date: 20200409
  Serious: No
  Sender: FDA-Public Use
  Company Number: US-PFIZER INC-2019290493

PATIENT
  Age: 68 Year
  Sex: Male
  Weight: 77.11 kg

DRUGS (4)
  1. VFEND [Suspect]
     Active Substance: VORICONAZOLE
     Indication: BRONCHOPULMONARY ASPERGILLOSIS
     Dosage: 200 MG, 1X/DAY (ONLY TAKES ONE PILL PER DAY)
  2. VFEND [Suspect]
     Active Substance: VORICONAZOLE
     Dosage: 200 MG, 1X/DAY
     Dates: start: 202001
  3. VFEND [Suspect]
     Active Substance: VORICONAZOLE
     Dosage: 200 MG, 2X/DAY
     Route: 048
  4. VFEND [Suspect]
     Active Substance: VORICONAZOLE
     Indication: ASPERGILLUS INFECTION
     Dosage: 200 MG, 2X/DAY (1 AM AND 1 PM)
     Route: 048
     Dates: start: 2014

REACTIONS (3)
  - Weight fluctuation [Unknown]
  - Intentional product misuse [Unknown]
  - Weight increased [Unknown]

NARRATIVE: CASE EVENT DATE: 202001
